FAERS Safety Report 9254981 (Version 2)
Quarter: 2013Q2

REPORT INFORMATION
  Report Type: Report from Study
  Country: BR (occurrence: BR)
  Receive Date: 20130425
  Receipt Date: 20130624
  Transmission Date: 20140414
  Serious: Yes (Hospitalization, Disabling, Other)
  Sender: FDA-Public Use
  Company Number: BR-ROCHE-1215168

PATIENT
  Sex: Male
  Weight: 80 kg

DRUGS (11)
  1. ACTEMRA [Suspect]
     Indication: RHEUMATOID ARTHRITIS
     Route: 065
  2. NALTREXONE [Concomitant]
     Indication: RHEUMATOID ARTHRITIS
  3. NALTREXONE [Concomitant]
     Indication: PAIN
  4. REUQUINOL [Concomitant]
     Indication: RHEUMATOID ARTHRITIS
  5. REUQUINOL [Concomitant]
     Indication: PAIN
  6. LOSARTAN [Concomitant]
     Indication: HYPERTENSION
  7. AMLODIPINE [Concomitant]
     Indication: HYPERTENSION
  8. METHOTREXATE [Concomitant]
     Indication: RHEUMATOID ARTHRITIS
  9. METHOTREXATE [Concomitant]
     Indication: PAIN
  10. PREDNISONE [Concomitant]
     Indication: RHEUMATOID ARTHRITIS
  11. PREDNISONE [Concomitant]
     Indication: PAIN

REACTIONS (5)
  - Drug ineffective [Unknown]
  - Localised infection [Recovered/Resolved]
  - Musculoskeletal disorder [Unknown]
  - Hip arthroplasty [Recovering/Resolving]
  - Gait disturbance [Unknown]
